FAERS Safety Report 7347766-9 (Version None)
Quarter: 2011Q1

REPORT INFORMATION
  Report Type: 
  Country: None (occurrence: None)
  Receive Date: 20110311
  Receipt Date: 20110307
  Transmission Date: 20110831
  Serious: Yes (Other)
  Sender: FDA-Public Use
  Company Number: US-PFIZER INC-2011050248

PATIENT
  Sex: Female
  Weight: 86.168 kg

DRUGS (1)
  1. IBUPROFEN (ADVIL) [Suspect]
     Indication: MYALGIA
     Dosage: 200MG, AS REQUIRED
     Dates: start: 19950101, end: 20110307

REACTIONS (13)
  - CHOLELITHIASIS [None]
  - DIVERTICULITIS [None]
  - GLOSSITIS [None]
  - ABDOMINAL DISCOMFORT [None]
  - APPENDICECTOMY [None]
  - BLOOD CHOLESTEROL INCREASED [None]
  - UTERINE DISORDER [None]
  - ARTHRITIS [None]
  - HIATUS HERNIA [None]
  - FIBROMYALGIA [None]
  - GASTROOESOPHAGEAL REFLUX DISEASE [None]
  - IRRITABLE BOWEL SYNDROME [None]
  - FOOD ALLERGY [None]
